FAERS Safety Report 24531278 (Version 3)
Quarter: 2025Q1

REPORT INFORMATION
  Report Type: Spontaneous
  Country: US (occurrence: US)
  Receive Date: 20241022
  Receipt Date: 20250106
  Transmission Date: 20250408
  Serious: Yes (Other)
  Sender: GLAUKOS
  Company Number: US-GLK-002379

PATIENT
  Age: 75 Year

DRUGS (6)
  1. IDOSE TR [Suspect]
     Active Substance: TRAVOPROST
     Indication: Glaucoma
     Dates: start: 20240917, end: 20240917
  2. BRIMONIDINE [Concomitant]
     Active Substance: BRIMONIDINE TARTRATE
  3. DORZOLAMIDE [Concomitant]
     Active Substance: DORZOLAMIDE
  4. TIMOLOL [Concomitant]
     Active Substance: TIMOLOL
  5. LATANOPROST [Concomitant]
     Active Substance: LATANOPROST
  6. VYZULTA [Concomitant]
     Active Substance: LATANOPROSTENE BUNOD

REACTIONS (2)
  - Device dislocation [Recovered/Resolved]
  - Medical device removal [Recovered/Resolved]

NARRATIVE: CASE EVENT DATE: 20240923
